FAERS Safety Report 19198473 (Version 1)
Quarter: 2021Q2

REPORT INFORMATION
  Report Type: Spontaneous
  Country: US (occurrence: US)
  Receive Date: 20210430
  Receipt Date: 20210430
  Transmission Date: 20210717
  Serious: No
  Sender: FDA-Public Use
  Company Number: US-FRESENIUS KABI-FK202104300

PATIENT
  Age: 73 Year
  Sex: Female

DRUGS (2)
  1. HEPARIN SODIUM INJECTION, USP [Suspect]
     Active Substance: HEPARIN SODIUM
     Indication: ANTICOAGULANT THERAPY
     Dosage: ESCALATING DOSES UNTIL THERAPEUTIC ACT RESULT ACHIEVED
     Route: 042
     Dates: start: 20210421, end: 20210421
  2. HEPARIN SODIUM IN 0.9% SODIUM CHLORIDE [Suspect]
     Active Substance: HEPARIN SODIUM\SODIUM CHLORIDE
     Indication: ANTICOAGULANT THERAPY
     Dosage: ESCALATING DOSES UNTIL THERAPEUTIC ACT RESULT ACHIEVED
     Route: 042
     Dates: start: 20210421, end: 20210421

REACTIONS (1)
  - Therapeutic product effect decreased [Recovered/Resolved]

NARRATIVE: CASE EVENT DATE: 20210421
